FAERS Safety Report 11179767 (Version 1)
Quarter: 2015Q2

REPORT INFORMATION
  Report Type: Spontaneous
  Country: US (occurrence: None)
  Receive Date: 20150609
  Receipt Date: 20150609
  Transmission Date: 20150821
  Serious: Yes (Hospitalization)
  Sender: FDA-Public Use
  Company Number: None

PATIENT
  Age: 55 Year
  Sex: Male
  Weight: 115.67 kg

DRUGS (4)
  1. ZYRTEC [Concomitant]
     Active Substance: CETIRIZINE HYDROCHLORIDE
  2. CPAP MACHINE [Concomitant]
  3. PREDISONE [Concomitant]
     Active Substance: PREDNISONE
  4. REMICADE [Suspect]
     Active Substance: INFLIXIMAB
     Indication: COLITIS ULCERATIVE
     Dosage: ESTIMATED (5MG/1KG) 580 MG EVERY 8 WEEKS INTO A VEIN; 5 INFUSIONS IN THE LAST 7 MONTHS

REACTIONS (8)
  - Pain [None]
  - Flushing [None]
  - Joint range of motion decreased [None]
  - Muscle tightness [None]
  - Blood pressure increased [None]
  - Musculoskeletal stiffness [None]
  - Pyrexia [None]
  - Swelling [None]

NARRATIVE: CASE EVENT DATE: 20150413
